FAERS Safety Report 7063585-5 (Version None)
Quarter: 2010Q4

REPORT INFORMATION
  Report Type: 
  Country: None (occurrence: None)
  Receive Date: 20101026
  Receipt Date: 20100722
  Transmission Date: 20110411
  Serious: No
  Sender: FDA-Public Use
  Company Number: US-ABBOTT-10P-163-0658987-00

PATIENT
  Sex: Female

DRUGS (2)
  1. LUPRON DEPOT [Suspect]
     Indication: ENDOMETRIOSIS
     Dates: start: 20100720
  2. HORMONE TREATMENTS [Concomitant]
     Indication: ENDOMETRIOSIS

REACTIONS (3)
  - HOT FLUSH [None]
  - MOOD SWINGS [None]
  - PREMATURE MENOPAUSE [None]
